FAERS Safety Report 18770674 (Version 2)
Quarter: 2021Q1

REPORT INFORMATION
  Report Type: Spontaneous
  Country: RO (occurrence: RO)
  Receive Date: 20210122
  Receipt Date: 20210328
  Transmission Date: 20210419
  Serious: Yes (Other)
  Sender: FDA-Public Use
  Company Number: RO-BIOGEN-2021BI00968956

PATIENT
  Age: 42 Year
  Sex: Male

DRUGS (2)
  1. EUTHYROX [Concomitant]
     Active Substance: LEVOTHYROXINE SODIUM
     Indication: PRODUCT USED FOR UNKNOWN INDICATION
     Route: 065
  2. PLEGRIDY [Suspect]
     Active Substance: PEGINTERFERON BETA-1A
     Indication: RELAPSING-REMITTING MULTIPLE SCLEROSIS
     Route: 065
     Dates: start: 202012

REACTIONS (6)
  - Herpes ophthalmic [Unknown]
  - Oral herpes [Unknown]
  - Influenza like illness [Unknown]
  - Magnetic resonance imaging abnormal [Unknown]
  - Prostatitis [Unknown]
  - Thyroiditis [Unknown]
